FAERS Safety Report 9894102 (Version 3)
Quarter: 2014Q1

REPORT INFORMATION
  Report Type: Spontaneous
  Country: JP (occurrence: JP)
  Receive Date: 20140213
  Receipt Date: 20140219
  Transmission Date: 20141002
  Serious: Yes (Death)
  Sender: FDA-Public Use
  Company Number: JP-OTSUKA-JP-2011-11141

PATIENT
  Age: 11 Year
  Sex: Male
  Weight: 25 kg

DRUGS (4)
  1. SAMSCA [Suspect]
     Indication: CARDIAC FAILURE
     Dosage: 7.5 MG MILLIGRAM(S), QD
     Route: 048
  2. LASIX [Concomitant]
     Dosage: UNK
     Route: 065
  3. ALDACTONE A [Concomitant]
     Dosage: UNK
     Route: 048
  4. CATECHOLAMINE [Concomitant]
     Dosage: UNK
     Route: 065

REACTIONS (1)
  - Cardiac failure [Fatal]
